FAERS Safety Report 23287995 (Version 2)
Quarter: 2024Q1

REPORT INFORMATION
  Report Type: Spontaneous
  Country: US (occurrence: US)
  Receive Date: 20231212
  Receipt Date: 20240209
  Transmission Date: 20240410
  Serious: Yes (Other)
  Sender: FDA-Public Use
  Company Number: US-OTSUKA-2023_031658

PATIENT
  Age: 26 Year
  Sex: Female
  Weight: 39.91 kg

DRUGS (9)
  1. ABILIFY [Suspect]
     Active Substance: ARIPIPRAZOLE
     Indication: Product used for unknown indication
     Dosage: UNK
     Route: 065
  2. CITALOPRAM [Suspect]
     Active Substance: CITALOPRAM HYDROBROMIDE
     Indication: Product used for unknown indication
     Dosage: UNK
     Route: 065
  3. ESCITALOPRAM OXALATE [Suspect]
     Active Substance: ESCITALOPRAM OXALATE
     Indication: Product used for unknown indication
     Dosage: UNK
     Route: 065
  4. PROZAC [Suspect]
     Active Substance: FLUOXETINE HYDROCHLORIDE
     Indication: Product used for unknown indication
     Dosage: UNK
     Route: 065
  5. ZOLOFT [Suspect]
     Active Substance: SERTRALINE HYDROCHLORIDE
     Indication: Product used for unknown indication
     Dosage: UNK
     Route: 065
  6. TRAZODONE [Suspect]
     Active Substance: TRAZODONE HYDROCHLORIDE
     Indication: Product used for unknown indication
     Dosage: UNK
     Route: 065
  7. HYDROXYZINE HYDROCHLORIDE [Suspect]
     Active Substance: HYDROXYZINE HYDROCHLORIDE
     Indication: Product used for unknown indication
     Dosage: UNK
     Route: 065
  8. CYMBALTA [Suspect]
     Active Substance: DULOXETINE HYDROCHLORIDE
     Indication: Product used for unknown indication
     Dosage: UNK
     Route: 065
  9. BUSPAR [Suspect]
     Active Substance: BUSPIRONE HYDROCHLORIDE
     Indication: Product used for unknown indication
     Dosage: UNK
     Route: 065

REACTIONS (48)
  - Cholecystectomy [Unknown]
  - Suicidal ideation [Unknown]
  - Suicide attempt [Unknown]
  - Biliary tract disorder [Unknown]
  - Post-traumatic stress disorder [Unknown]
  - Premenstrual dysphoric disorder [Unknown]
  - Borderline personality disorder [Unknown]
  - Affective disorder [Unknown]
  - Frustration tolerance decreased [Unknown]
  - Mental disability [Unknown]
  - Illness [Unknown]
  - Emotional disorder [Unknown]
  - Raynaud^s phenomenon [Unknown]
  - Full blood count abnormal [Unknown]
  - Underweight [Not Recovered/Not Resolved]
  - Electric shock sensation [Unknown]
  - Joint injury [Unknown]
  - Loss of personal independence in daily activities [Unknown]
  - Influenza [Unknown]
  - Obsessive-compulsive disorder [Unknown]
  - Urinary tract infection [Unknown]
  - Ovarian disorder [Unknown]
  - Withdrawal syndrome [Unknown]
  - Migraine [Unknown]
  - Hunger [Unknown]
  - Nightmare [Unknown]
  - Paranoia [Unknown]
  - Feeling cold [Unknown]
  - Hypoaesthesia [Unknown]
  - Abdominal pain [Not Recovered/Not Resolved]
  - Anger [Unknown]
  - Muscle spasms [Unknown]
  - Nasopharyngitis [Unknown]
  - Pain [Unknown]
  - Fatigue [Unknown]
  - Insomnia [Unknown]
  - Abdominal discomfort [Unknown]
  - Rash [Unknown]
  - Decreased appetite [Not Recovered/Not Resolved]
  - Constipation [Unknown]
  - Hypertension [Unknown]
  - Dyspepsia [Unknown]
  - Anxiety [Unknown]
  - Refusal of treatment by patient [Unknown]
  - Drug ineffective [Unknown]
  - Personal relationship issue [Unknown]
  - Non-consummation [Unknown]
  - Social problem [Unknown]

NARRATIVE: CASE EVENT DATE: 20170101
